FAERS Safety Report 10058491 (Version 1)
Quarter: 2014Q2

REPORT INFORMATION
  Report Type: Spontaneous
  Country: US (occurrence: US)
  Receive Date: 20140404
  Receipt Date: 20140404
  Transmission Date: 20141212
  Serious: No
  Sender: FDA-Public Use
  Company Number: US-ROXANE LABORATORIES, INC.-2014-RO-00533RO

PATIENT
  Age: 60 Year
  Sex: Female

DRUGS (1)
  1. LETROZOLE [Suspect]
     Indication: OESTROGEN RECEPTOR POSITIVE BREAST CANCER
     Dosage: 2.5 MG
     Route: 048
     Dates: start: 201311, end: 201403

REACTIONS (1)
  - Vertigo [Recovered/Resolved]
